FAERS Safety Report 10180230 (Version 1)
Quarter: 2014Q2

REPORT INFORMATION
  Report Type: Spontaneous
  Country: US (occurrence: US)
  Receive Date: 20140519
  Receipt Date: 20140519
  Transmission Date: 20141212
  Serious: No
  Sender: FDA-Public Use
  Company Number: US-AMGEN INC.-USASP2013088367

PATIENT
  Age: 70 Year
  Sex: Female

DRUGS (3)
  1. PROLIA [Suspect]
     Indication: OSTEOPOROSIS POSTMENOPAUSAL
     Dosage: UNK,Q6MO
     Route: 065
     Dates: start: 201304
  2. DEXILANT [Concomitant]
  3. PRAVASTATIN [Concomitant]

REACTIONS (1)
  - Abdominal pain [Unknown]
